FAERS Safety Report 8494962-3 (Version None)
Quarter: 2012Q2

REPORT INFORMATION
  Report Type: 
  Country: None (occurrence: None)
  Receive Date: 20120405
  Receipt Date: 20100507
  Transmission Date: 20120825
  Serious: Yes (Other)
  Sender: FDA-Public Use
  Company Number: PHHY2010US26741

PATIENT
  Age: 52 Year
  Sex: Female

DRUGS (4)
  1. CARDIZEM LA [Concomitant]
  2. RECLAST [Suspect]
     Indication: OSTEOPOROSIS
     Dosage: INTRAVENOUS
     Route: 042
     Dates: start: 20100421
  3. PROMETRIUM [Concomitant]
  4. ESTRADIOL [Concomitant]

REACTIONS (9)
  - HEADACHE [None]
  - ARTHRALGIA [None]
  - PAIN [None]
  - PYREXIA [None]
  - URTICARIA [None]
  - SWELLING FACE [None]
  - FATIGUE [None]
  - RASH [None]
  - EYELID DISORDER [None]
